FAERS Safety Report 14343942 (Version 1)
Quarter: 2018Q1

REPORT INFORMATION
  Report Type: Report from Study
  Country: US (occurrence: US)
  Receive Date: 20180102
  Receipt Date: 20180102
  Transmission Date: 20180509
  Serious: Yes (Other)
  Sender: FDA-Public Use
  Company Number: US-ACTELION-A-US2017-148972

PATIENT
  Age: 57 Year
  Sex: Female

DRUGS (1)
  1. OPSUMIT [Suspect]
     Active Substance: MACITENTAN
     Indication: PULMONARY ARTERIAL HYPERTENSION
     Dosage: 10 MG, UNK
     Route: 048
     Dates: start: 20170227

REACTIONS (9)
  - Drug dose omission [Unknown]
  - Nasal congestion [Recovering/Resolving]
  - Dyspnoea [Unknown]
  - Hepatitis C [Unknown]
  - Cough [Recovering/Resolving]
  - Wheezing [Recovering/Resolving]
  - Bedridden [Unknown]
  - Headache [Recovering/Resolving]
  - Memory impairment [Unknown]
